FAERS Safety Report 5452618-5 (Version None)
Quarter: 2007Q3

REPORT INFORMATION
  Report Type: 
  Country: None (occurrence: None)
  Receive Date: 20070914
  Receipt Date: 20070910
  Transmission Date: 20080115
  Serious: Yes (Hospitalization)
  Sender: FDA-Public Use
  Company Number: BR-BRISTOL-MYERS SQUIBB COMPANY-13905666

PATIENT
  Age: 55 Year
  Sex: Female
  Weight: 82 kg

DRUGS (5)
  1. WARFARIN SODIUM [Suspect]
     Indication: ANTICOAGULANT THERAPY
     Route: 048
  2. SOMALIUM [Concomitant]
  3. ARELIX [Concomitant]
  4. MODURETIC MITE [Concomitant]
  5. OXYGEN [Concomitant]

REACTIONS (10)
  - COMA [None]
  - DRUG INEFFECTIVE [None]
  - EMBOLISM [None]
  - FLUID RETENTION [None]
  - HAEMATOMA [None]
  - INTERNATIONAL NORMALISED RATIO FLUCTUATION [None]
  - SKIN DISCOLOURATION [None]
  - SWELLING [None]
  - THROMBOSIS [None]
  - VEIN PAIN [None]
